FAERS Safety Report 10390440 (Version 4)
Quarter: 2014Q4

REPORT INFORMATION
  Report Type: Report from Study
  Country: US (occurrence: US)
  Receive Date: 20140818
  Receipt Date: 20141222
  Transmission Date: 20150528
  Serious: Yes (Other)
  Sender: FDA-Public Use
  Company Number: US-SANOFI-AVENTIS-2013SA048029

PATIENT
  Age: 52 Year
  Sex: Female

DRUGS (2)
  1. AUBAGIO [Suspect]
     Active Substance: TERIFLUNOMIDE
     Indication: MULTIPLE SCLEROSIS
     Route: 048
     Dates: start: 20130529
  2. AUBAGIO [Suspect]
     Active Substance: TERIFLUNOMIDE
     Indication: MULTIPLE SCLEROSIS
     Route: 048
     Dates: start: 20130507, end: 20130515

REACTIONS (13)
  - Epilepsy [Unknown]
  - Headache [Unknown]
  - Multiple sclerosis relapse [Unknown]
  - Fatigue [Unknown]
  - Nausea [Unknown]
  - Hypoaesthesia [Recovered/Resolved]
  - Chest discomfort [Unknown]
  - Hypertension [Unknown]
  - Somnolence [Unknown]
  - Disability [Unknown]
  - Confusional state [Unknown]
  - Thyroid disorder [Unknown]
  - Nervousness [Unknown]
